FAERS Safety Report 20448202 (Version 1)
Quarter: 2022Q1

REPORT INFORMATION
  Report Type: Spontaneous
  Country: US (occurrence: US)
  Receive Date: 20220209
  Receipt Date: 20220209
  Transmission Date: 20220423
  Serious: Yes (Other)
  Sender: FDA-Public Use
  Company Number: US-SA-SAC20220203001509

PATIENT
  Age: 56 Year
  Sex: Male

DRUGS (2)
  1. ZANTAC [Suspect]
     Active Substance: RANITIDINE HYDROCHLORIDE
     Indication: Abdominal discomfort
     Dosage: 25 MG, QD
     Dates: start: 200001, end: 201706
  2. ZANTAC [Suspect]
     Active Substance: RANITIDINE HYDROCHLORIDE
     Indication: Gastrooesophageal reflux disease

REACTIONS (7)
  - Bladder cancer stage IV [Unknown]
  - Colorectal cancer stage III [Unknown]
  - Renal cancer [Unknown]
  - Hepatic cancer [Unknown]
  - Uterine cancer [Unknown]
  - Gallbladder cancer [Unknown]
  - Prostate cancer [Unknown]

NARRATIVE: CASE EVENT DATE: 20170201
